FAERS Safety Report 6988604-3 (Version None)
Quarter: 2010Q3

REPORT INFORMATION
  Report Type: 
  Country: None (occurrence: None)
  Receive Date: 20100916
  Receipt Date: 20100913
  Transmission Date: 20110219
  Serious: Yes (Death, Other)
  Sender: FDA-Public Use
  Company Number: US-ELI_LILLY_AND_COMPANY-US201008004587

PATIENT
  Sex: Male

DRUGS (6)
  1. ALIMTA [Suspect]
     Indication: ADENOCARCINOMA
     Dosage: 475 MG/M2, UNK
     Dates: start: 20100222, end: 20100721
  2. ALIMTA [Suspect]
     Dosage: 310 MG/M2, UNK
     Dates: start: 20100721
  3. CARBOPLATIN [Concomitant]
  4. ERBITUX [Concomitant]
     Dosage: 250 MG/M2, UNK
  5. NORVASC [Concomitant]
     Indication: HYPERTENSION
     Dosage: 5 MG, DAILY (1/D)
  6. METFORMIN [Concomitant]
     Indication: DIABETES MELLITUS
     Dosage: 1000 MG, 2/D

REACTIONS (8)
  - ALANINE AMINOTRANSFERASE INCREASED [None]
  - ASPARTATE AMINOTRANSFERASE INCREASED [None]
  - BLOOD CALCIUM DECREASED [None]
  - BLOOD POTASSIUM INCREASED [None]
  - GENERAL PHYSICAL HEALTH DETERIORATION [None]
  - GLOMERULAR FILTRATION RATE DECREASED [None]
  - PANCYTOPENIA [None]
  - RENAL FAILURE [None]
